FAERS Safety Report 7114525-1 (Version None)
Quarter: 2010Q4

REPORT INFORMATION
  Report Type: 
  Country: None (occurrence: None)
  Receive Date: 20101119
  Receipt Date: 20101115
  Transmission Date: 20110411
  Serious: Yes (Other)
  Sender: FDA-Public Use
  Company Number: ES-MERCK-1011ESP00017

PATIENT
  Age: 69 Year
  Sex: Male

DRUGS (7)
  1. JANUMET [Suspect]
     Indication: TYPE 2 DIABETES MELLITUS
     Route: 048
     Dates: start: 20100501
  2. ENOXAPARIN SODIUM [Concomitant]
     Route: 058
  3. COROPRES [Concomitant]
     Route: 048
  4. TRANGOREX [Concomitant]
     Route: 048
     Dates: end: 20101009
  5. NOVO-NORM [Concomitant]
     Route: 048
  6. SEGURIL [Concomitant]
     Route: 048
     Dates: end: 20101009
  7. ASPIRIN [Concomitant]
     Route: 065

REACTIONS (2)
  - ACUTE MYOCARDIAL INFARCTION [None]
  - MYOCARDIAL ISCHAEMIA [None]
